FAERS Safety Report 4444833-4 (Version None)
Quarter: 2004Q3

REPORT INFORMATION
  Report Type: 
  Country: None (occurrence: None)
  Receive Date: 20040903
  Receipt Date: 20040820
  Transmission Date: 20050211
  Serious: No
  Sender: FDA-Public Use
  Company Number: 2004AP04395

PATIENT
  Sex: Male

DRUGS (3)
  1. OMEPRAL [Suspect]
     Indication: REFLUX OESOPHAGITIS
     Dosage: 20 MG DAILY PO
     Route: 048
  2. DASEN [Suspect]
     Indication: REFLUX OESOPHAGITIS
  3. MINOMYCIN [Suspect]
     Dosage: 200 MG DAILY PO
     Route: 048
     Dates: start: 20040819

REACTIONS (7)
  - DRUG INTERACTION [None]
  - FEELING COLD [None]
  - HYPOAESTHESIA [None]
  - PALLOR [None]
  - PHARYNGOLARYNGEAL PAIN [None]
  - SHOCK [None]
  - TREMOR [None]
